FAERS Safety Report 25040892 (Version 1)
Quarter: 2025Q1

REPORT INFORMATION
  Report Type: Spontaneous
  Country: US (occurrence: None)
  Receive Date: 20250304
  Receipt Date: 20250304
  Transmission Date: 20250409
  Serious: Yes (unspecified)
  Sender: FDA-CTU
  Company Number: None

PATIENT
  Age: 54 Year
  Sex: Male
  Weight: 70.2 kg

DRUGS (2)
  1. UZEDY [Suspect]
     Active Substance: RISPERIDONE
     Indication: Schizoaffective disorder bipolar type
     Route: 058
     Dates: start: 20240924, end: 20241031
  2. UZEDY [Concomitant]
     Active Substance: RISPERIDONE
     Dates: start: 20240722, end: 20241031

REACTIONS (3)
  - Skin hyperpigmentation [None]
  - Skin mass [None]
  - Cyst [None]

NARRATIVE: CASE EVENT DATE: 20241231
